FAERS Safety Report 5743147-X (Version None)
Quarter: 2008Q2

REPORT INFORMATION
  Report Type: 
  Country: None (occurrence: None)
  Receive Date: 20080519
  Receipt Date: 20080512
  Transmission Date: 20081010
  Serious: Yes (Life-Threatening, Hospitalization)
  Sender: FDA-Public Use
  Company Number: JP-BOEHRINGER INGELHEIM GMBH, GERMANY-2008-BP-07590RO

PATIENT
  Age: 38 Year
  Sex: Female
  Weight: 55 kg

DRUGS (7)
  1. LITHIUM CARBONATE [Suspect]
     Indication: BIPOLAR DISORDER
  2. CARBAMAZEPINE [Suspect]
     Indication: BIPOLAR DISORDER
  3. SODIUM CHLORIDE [Concomitant]
     Indication: GASTRIC LAVAGE
  4. ACTIVATED CHARCOAL [Concomitant]
     Indication: OVERDOSE
  5. MAGCOLOL [Concomitant]
     Indication: OVERDOSE
  6. LACTATED RINGER'S [Concomitant]
     Indication: OVERDOSE
     Route: 042
  7. SODIUM HEPARIN-ADDED CHARCOAL HEMOPERFUSION [Concomitant]
     Indication: OVERDOSE

REACTIONS (1)
  - OVERDOSE [None]
